FAERS Safety Report 16305455 (Version 1)
Quarter: 2019Q2

REPORT INFORMATION
  Report Type: Report from Study
  Country: US (occurrence: US)
  Receive Date: 20190513
  Receipt Date: 20190513
  Transmission Date: 20190711
  Serious: Yes (Other)
  Sender: FDA-Public Use
  Company Number: US-JNJFOC-20190512261

PATIENT
  Age: 65 Year
  Sex: Female

DRUGS (9)
  1. CELEBREX [Concomitant]
     Active Substance: CELECOXIB
  2. ACYCLOVIR. [Concomitant]
     Active Substance: ACYCLOVIR
  3. CYANOCOBALAMIN. [Concomitant]
     Active Substance: CYANOCOBALAMIN
  4. METHOTREXATE. [Concomitant]
     Active Substance: METHOTREXATE
  5. ASPIRIN. [Concomitant]
     Active Substance: ASPIRIN
  6. IMBRUVICA [Suspect]
     Active Substance: IBRUTINIB
     Indication: CHRONIC LYMPHOCYTIC LEUKAEMIA
     Route: 048
     Dates: start: 20190208
  7. MULTIVITAMINS [Concomitant]
     Active Substance: VITAMINS
  8. VENLAFAXINE [Concomitant]
     Active Substance: VENLAFAXINE HYDROCHLORIDE
  9. FOLIC ACID. [Concomitant]
     Active Substance: FOLIC ACID

REACTIONS (1)
  - Vascular rupture [Unknown]

NARRATIVE: CASE EVENT DATE: 201904
